FAERS Safety Report 6902409-0 (Version None)
Quarter: 2010Q3

REPORT INFORMATION
  Report Type: 
  Country: None (occurrence: None)
  Receive Date: 20100803
  Receipt Date: 20080521
  Transmission Date: 20110219
  Serious: No
  Sender: FDA-Public Use
  Company Number: US-PFIZER INC-2008044743

PATIENT
  Sex: Male

DRUGS (13)
  1. LYRICA [Suspect]
     Indication: NEUROPATHY PERIPHERAL
  2. ACETYLSALICYLIC ACID SRT [Concomitant]
  3. PLAVIX [Concomitant]
  4. CORTISONE [Concomitant]
  5. DIGOXIN [Concomitant]
  6. IBUPROFEN [Concomitant]
  7. INSULIN [Concomitant]
  8. LISINOPRIL [Concomitant]
  9. ROBAXIN [Concomitant]
  10. METOPROLOL [Concomitant]
  11. NEXIUM [Concomitant]
  12. TAMSULOSIN HYDROCHLORIDE [Concomitant]
  13. PHENYTOIN [Concomitant]

REACTIONS (1)
  - HYPONATRAEMIA [None]
